FAERS Safety Report 5729859-2 (Version None)
Quarter: 2008Q2

REPORT INFORMATION
  Report Type: 
  Country: None (occurrence: None)
  Receive Date: 20080502
  Receipt Date: 20080422
  Transmission Date: 20081010
  Serious: Yes (Hospitalization)
  Sender: FDA-Public Use
  Company Number: 2007US002825

PATIENT
  Age: 6 Year
  Sex: Male
  Weight: 23 kg

DRUGS (16)
  1. PROGRAF [Suspect]
     Indication: RENAL TRANSPLANT
     Dates: start: 20060407
  2. ZENAPAX [Suspect]
     Indication: RENAL TRANSPLANT
     Dosage: SEE IMAGE
     Route: 042
     Dates: start: 20060324, end: 20060324
  3. ZENAPAX [Suspect]
     Indication: RENAL TRANSPLANT
     Dosage: SEE IMAGE
     Route: 042
     Dates: start: 20060325, end: 20060325
  4. ZENAPAX [Suspect]
     Indication: RENAL TRANSPLANT
     Dosage: SEE IMAGE
     Route: 042
     Dates: start: 20060407, end: 20060407
  5. ZENAPAX [Suspect]
     Indication: RENAL TRANSPLANT
     Dosage: SEE IMAGE
     Route: 042
     Dates: start: 20060421, end: 20060421
  6. ZENAPAX [Suspect]
     Indication: RENAL TRANSPLANT
     Dosage: SEE IMAGE
     Route: 042
     Dates: start: 20060505, end: 20060505
  7. ZENAPAX [Suspect]
     Indication: RENAL TRANSPLANT
     Dosage: SEE IMAGE
     Route: 042
     Dates: start: 20060519, end: 20060519
  8. ZENAPAX [Suspect]
     Indication: RENAL TRANSPLANT
     Dosage: SEE IMAGE
     Route: 042
     Dates: start: 20060609, end: 20060609
  9. ZENAPAX [Suspect]
     Indication: RENAL TRANSPLANT
     Dosage: SEE IMAGE
     Route: 042
     Dates: start: 20060706, end: 20060706
  10. ZENAPAX [Suspect]
     Indication: RENAL TRANSPLANT
     Dosage: SEE IMAGE
     Route: 042
     Dates: start: 20060811, end: 20060811
  11. ZENAPAX [Suspect]
     Indication: RENAL TRANSPLANT
     Dosage: SEE IMAGE
     Route: 042
     Dates: start: 20060911, end: 20060911
  12. AUGMENTIN (AMOXICILLIN SODIUM) [Concomitant]
  13. TYLENOL (DEXTROMETHORPHAN HYDROBROMIDE, PSEUDOEPHEDRINE HYDROCHLORIDE, [Concomitant]
  14. MAGLUCATE (MAGNESIUM GLUCONATE) [Concomitant]
  15. EUCERIN (PARAFFIN, LIQUID, WOOL FAT, PETROLATUM) [Concomitant]
  16. VALCYTE [Concomitant]

REACTIONS (4)
  - EPSTEIN-BARR VIRUS TEST POSITIVE [None]
  - HAEMATOCRIT DECREASED [None]
  - HAEMOGLOBIN DECREASED [None]
  - TONSILLAR HYPERTROPHY [None]
